FAERS Safety Report 9394279 (Version 1)
Quarter: 2013Q3

REPORT INFORMATION
  Report Type: Spontaneous
  Country: DK (occurrence: DK)
  Receive Date: 20130711
  Receipt Date: 20130711
  Transmission Date: 20140515
  Serious: Yes (Life-Threatening, Hospitalization)
  Sender: FDA-Public Use
  Company Number: DK-ROCHE-1246804

PATIENT
  Age: 75 Year
  Sex: Male

DRUGS (1)
  1. ZELBORAF [Suspect]
     Indication: METASTATIC MALIGNANT MELANOMA
     Dosage: STYRKE: 240 MG?FORM REPORTED AS 82
     Route: 048
     Dates: start: 20130629, end: 20130630

REACTIONS (1)
  - Volvulus [Recovered/Resolved]
